FAERS Safety Report 15081403 (Version 4)
Quarter: 2018Q3

REPORT INFORMATION
  Report Type: Spontaneous
  Country: US (occurrence: US)
  Receive Date: 20180628
  Receipt Date: 20180707
  Transmission Date: 20181010
  Serious: Yes (Other)
  Sender: FDA-Public Use
  Company Number: US-ACCORD-068940

PATIENT
  Age: 71 Year
  Sex: Female
  Weight: 65.77 kg

DRUGS (10)
  1. TRAZODONE [Concomitant]
     Active Substance: TRAZODONE HYDROCHLORIDE
     Indication: INSOMNIA
     Dates: start: 20180102
  2. ROSUVASTATIN/ROSUVASTATIN CALCIUM [Concomitant]
     Indication: BLOOD CHOLESTEROL INCREASED
  3. ZINC. [Concomitant]
     Active Substance: ZINC
  4. ERGOCALCIFEROL. [Concomitant]
     Active Substance: ERGOCALCIFEROL
  5. ANASTROZOLE ACCORD [Suspect]
     Active Substance: ANASTROZOLE
     Indication: BREAST CANCER STAGE I
     Dosage: ONCE A DAY IN THE EVENING
     Route: 048
     Dates: start: 201706, end: 20180430
  6. VALACICLOVIR [Concomitant]
     Active Substance: VALACYCLOVIR HYDROCHLORIDE
     Indication: GENITAL HERPES
  7. LISINOPRIL. [Concomitant]
     Active Substance: LISINOPRIL
     Indication: CEREBRAL HAEMORRHAGE
  8. CALCIUM GLUCONATE. [Concomitant]
     Active Substance: CALCIUM GLUCONATE
  9. SERTRALINE [Concomitant]
     Active Substance: SERTRALINE HYDROCHLORIDE
     Indication: DEPRESSION
  10. BABY ASA [Concomitant]
     Active Substance: ASPIRIN

REACTIONS (9)
  - Cognitive disorder [Unknown]
  - Insomnia [Recovering/Resolving]
  - Balance disorder [Unknown]
  - Bone pain [Not Recovered/Not Resolved]
  - Visual impairment [Unknown]
  - Mental impairment [Recovered/Resolved]
  - Cerebral ischaemia [Recovered/Resolved]
  - Memory impairment [Unknown]
  - Condition aggravated [Recovered/Resolved]

NARRATIVE: CASE EVENT DATE: 201712
